FAERS Safety Report 13294009 (Version 6)
Quarter: 2017Q2

REPORT INFORMATION
  Report Type: Report from Study
  Country: JP (occurrence: JP)
  Receive Date: 20170303
  Receipt Date: 20170614
  Transmission Date: 20170830
  Serious: Yes (Hospitalization)
  Sender: FDA-Public Use
  Company Number: JP-PFIZER INC-2017084064

PATIENT
  Age: 64 Year
  Sex: Male
  Weight: 49 kg

DRUGS (13)
  1. ATORVASTATIN CALCIUM TRIHYDRATE [Concomitant]
     Active Substance: ATORVASTATIN CALCIUM
     Indication: DYSLIPIDAEMIA
     Dosage: 10 MG ONCE DAILY IN THE MORNING
     Route: 048
     Dates: start: 20040206
  2. FEBURIC [Concomitant]
     Active Substance: FEBUXOSTAT
     Indication: HYPERURICAEMIA
     Dosage: 10 MG ONCE DAILY AFTER BREAKFAST
     Route: 048
     Dates: start: 20150903
  3. UREPEARL [Concomitant]
     Active Substance: UREA
     Indication: PALMAR-PLANTAR ERYTHRODYSAESTHESIA SYNDROME
     Dosage: AT AN APPROPRIATE DOSE 2 - 3 TIMES DAILY
     Route: 061
     Dates: start: 20170110
  4. ATENOLOL. [Concomitant]
     Active Substance: ATENOLOL
     Indication: HYPERTENSION
     Dosage: 50 MG, ONCE DAILY IN THE MORNING
     Route: 048
  5. INLYTA [Suspect]
     Active Substance: AXITINIB
     Indication: RENAL CELL CARCINOMA
     Dosage: 5 MG, 2X/DAY
     Route: 048
     Dates: start: 20160809, end: 20170123
  6. TAPENTA [Concomitant]
     Active Substance: TAPENTADOL HYDROCHLORIDE
     Indication: PAIN
     Dosage: 50 MG TWICE DAILY AFTER BREAKFAST AND AFTER DINNER
     Route: 048
     Dates: start: 20160728
  7. INLYTA [Suspect]
     Active Substance: AXITINIB
     Dosage: 3 MG, 2X/DAY
     Route: 048
     Dates: start: 20170124, end: 20170206
  8. AMLODIPINE BESILATE [Concomitant]
     Active Substance: AMLODIPINE BESYLATE
     Indication: HYPERTENSION
     Dosage: 5 MG, 1X/DAY IN THE MORNING
     Route: 048
  9. AVELUMAB [Suspect]
     Active Substance: AVELUMAB
     Indication: RENAL CELL CARCINOMA
     Dosage: 10 MG/KG (682 MG) CYCLIC (EVERY 2 WEEKS)
     Route: 042
     Dates: start: 20160809
  10. AVELUMAB [Suspect]
     Active Substance: AVELUMAB
     Dosage: 584 MG, UNK
     Dates: start: 20160920
  11. AVELUMAB [Suspect]
     Active Substance: AVELUMAB
     Dosage: 510 MG, UNK
     Dates: start: 20161227, end: 20161227
  12. MICARDIS [Concomitant]
     Active Substance: TELMISARTAN
     Indication: HYPERTENSION
     Dosage: 40 MG ONCE DAILY AFTER BREAKFAST
     Route: 048
     Dates: start: 20121015
  13. THYRADIN S [Concomitant]
     Active Substance: LEVOTHYROXINE SODIUM
     Indication: HYPOTHYROIDISM
     Dosage: 12.5 UG, (HALF OF A TABLET) 1X/DAY AFTER BREAKFAST
     Route: 048
     Dates: start: 20170124

REACTIONS (1)
  - General physical health deterioration [Recovered/Resolved]

NARRATIVE: CASE EVENT DATE: 20170223
